FAERS Safety Report 9659439 (Version 3)
Quarter: 2013Q4

REPORT INFORMATION
  Report Type: Spontaneous
  Country: JP (occurrence: JP)
  Receive Date: 20131031
  Receipt Date: 20131106
  Transmission Date: 20140711
  Serious: Yes (Death, Life-Threatening, Other)
  Sender: FDA-Public Use
  Company Number: JP-JNJFOC-20130917347

PATIENT
  Age: 77 Year
  Sex: Male
  Weight: 42 kg

DRUGS (10)
  1. REMICADE [Suspect]
     Indication: ERYTHRODERMIC PSORIASIS
     Dosage: 1ST DOSE
     Route: 042
     Dates: start: 20130819
  2. PREDONINE [Suspect]
     Indication: DERMATITIS EXFOLIATIVE
     Route: 048
     Dates: start: 20130814, end: 20130819
  3. ALLEGRA [Concomitant]
     Indication: PRURITUS
     Route: 048
     Dates: start: 20130808, end: 20130903
  4. VOLTAREN [Concomitant]
     Route: 065
  5. PERIACTIN [Concomitant]
     Indication: PRURITUS
     Route: 048
     Dates: start: 20130808, end: 20130822
  6. HYPEN [Concomitant]
     Indication: DERMATITIS EXFOLIATIVE
     Route: 048
     Dates: start: 20130808, end: 20130822
  7. MUCOSTA [Concomitant]
     Indication: GASTRITIS
     Route: 048
     Dates: start: 20130808, end: 20130822
  8. GEBEN [Concomitant]
     Indication: DERMATITIS EXFOLIATIVE
     Route: 065
     Dates: start: 20130809
  9. TIGASON [Concomitant]
     Indication: DERMATITIS EXFOLIATIVE
     Route: 048
     Dates: start: 20130912
  10. ALLELOCK [Concomitant]
     Indication: PRURITUS
     Route: 048
     Dates: start: 20130912

REACTIONS (5)
  - Endocarditis [Not Recovered/Not Resolved]
  - Cerebral artery embolism [Fatal]
  - Disseminated intravascular coagulation [Recovered/Resolved]
  - Sepsis [Recovered/Resolved]
  - Cerebral infarction [Unknown]
